FAERS Safety Report 9692104 (Version 1)
Quarter: 2013Q4

REPORT INFORMATION
  Report Type: Spontaneous
  Country: US (occurrence: US)
  Receive Date: 20131118
  Receipt Date: 20131118
  Transmission Date: 20140711
  Serious: Yes (Hospitalization)
  Sender: FDA-Public Use
  Company Number: US-BIOGENIDEC-2013BI108886

PATIENT
  Sex: Female

DRUGS (8)
  1. AVONEX [Suspect]
     Indication: MULTIPLE SCLEROSIS
     Route: 030
     Dates: start: 20090302
  2. ALBUTEROL [Concomitant]
  3. DILANTIN [Concomitant]
  4. FUROSEMIDE [Concomitant]
  5. LEVOFLAXACIN [Concomitant]
  6. POTASSIUM [Concomitant]
  7. MAGNESIUM ASPARTATE [Concomitant]
  8. PREDNISONE [Concomitant]

REACTIONS (1)
  - Chronic obstructive pulmonary disease [Unknown]
